FAERS Safety Report 6324618-4 (Version None)
Quarter: 2009Q3

REPORT INFORMATION
  Report Type: 
  Country: None (occurrence: None)
  Receive Date: 20090824
  Receipt Date: 20090507
  Transmission Date: 20100115
  Serious: No
  Sender: FDA-Public Use
  Company Number: US-ABBOTT-09P-163-0572400-00

PATIENT
  Sex: Male
  Weight: 86.26 kg

DRUGS (1)
  1. NIASPAN [Suspect]
     Indication: HIGH DENSITY LIPOPROTEIN DECREASED
     Dates: start: 20090326

REACTIONS (2)
  - FLUSHING [None]
  - TREATMENT NONCOMPLIANCE [None]
